FAERS Safety Report 7452368-X (Version None)
Quarter: 2011Q2

REPORT INFORMATION
  Report Type: 
  Country: None (occurrence: None)
  Receive Date: 20110502
  Receipt Date: 20110426
  Transmission Date: 20111010
  Serious: Yes (Other)
  Sender: FDA-Public Use
  Company Number: BR-US-EMD SERONO, INC.-7056157

PATIENT
  Sex: Female

DRUGS (6)
  1. ATENSINE [Concomitant]
  2. LOSARTAN POTASSIUM [Concomitant]
  3. REBIF [Suspect]
     Indication: RELAPSING-REMITTING MULTIPLE SCLEROSIS
     Dates: start: 20100728
  4. HIDRION [Concomitant]
  5. PURAN T4 [Concomitant]
  6. PROPRANOLOL [Concomitant]

REACTIONS (5)
  - ELECTROCARDIOGRAM REPOLARISATION ABNORMALITY [None]
  - FATIGUE [None]
  - HYPERTENSION [None]
  - ELECTROCARDIOGRAM ABNORMAL [None]
  - DYSPNOEA [None]
